FAERS Safety Report 6677613-X (Version None)
Quarter: 2010Q2

REPORT INFORMATION
  Report Type: 
  Country: None (occurrence: None)
  Receive Date: 20100412
  Receipt Date: 20100304
  Transmission Date: 20101027
  Serious: No
  Sender: FDA-Public Use
  Company Number: US-ALEXION-A201000253

PATIENT
  Sex: Female

DRUGS (7)
  1. SOLIRIS [Suspect]
     Indication: PAROXYSMAL NOCTURNAL HAEMOGLOBINURIA
     Dosage: 600 MG, QW X4
     Route: 042
     Dates: start: 20091101
  2. SOLIRIS [Suspect]
     Dosage: 900 MG, UNK
     Route: 043
  3. LORATADINE [Concomitant]
     Indication: HYPERSENSITIVITY
     Dosage: UNK
     Route: 048
  4. ACIPHEX [Concomitant]
     Indication: GASTROOESOPHAGEAL REFLUX DISEASE
     Dosage: UNK
     Route: 048
  5. ALTACE [Concomitant]
     Indication: BLOOD PRESSURE
     Dosage: UNK
     Route: 048
  6. ZIAK [Concomitant]
     Indication: BLOOD PRESSURE
     Dosage: UNK
     Route: 048
  7. TRAMADOL HCL [Concomitant]
     Indication: MIGRAINE
     Dosage: UNK
     Route: 048

REACTIONS (2)
  - HAEMOGLOBIN DECREASED [None]
  - PAIN [None]
